FAERS Safety Report 6993683-3 (Version None)
Quarter: 2010Q3

REPORT INFORMATION
  Report Type: 
  Country: None (occurrence: None)
  Receive Date: 20100917
  Receipt Date: 20080304
  Transmission Date: 20110219
  Serious: Yes (Other)
  Sender: FDA-Public Use
  Company Number: US-ASTRAZENECA-2007UW27635

PATIENT
  Age: 493 Month
  Sex: Female
  Weight: 93.7 kg

DRUGS (12)
  1. SEROQUEL [Suspect]
     Indication: SLEEP DISORDER
     Dosage: 100 MG TO 400 MG
     Route: 048
     Dates: start: 20040614, end: 20070614
  2. SEROQUEL [Suspect]
     Indication: ANXIETY
     Dosage: 100 MG TO 400 MG
     Route: 048
     Dates: start: 20040614, end: 20070614
  3. SEROQUEL [Suspect]
     Dosage: 100-400 MG
     Route: 048
     Dates: start: 20050524
  4. SEROQUEL [Suspect]
     Dosage: 100-400 MG
     Route: 048
     Dates: start: 20050524
  5. ADVAIR DISKUS 100/50 [Concomitant]
     Dosage: 100/50 MCG BID, 250 MCG -50 MCG
     Dates: start: 20011009, end: 20070430
  6. GEODON [Concomitant]
     Dosage: 25-240 MG
     Route: 048
     Dates: start: 20040217, end: 20050524
  7. GABITRIL [Concomitant]
     Route: 048
     Dates: start: 20040826, end: 20050524
  8. NAPROSYN [Concomitant]
     Route: 048
     Dates: start: 20040826, end: 20050524
  9. NEURONTIN [Concomitant]
     Dosage: 300 MG DISPENSED
     Dates: start: 20040826
  10. XENICAL [Concomitant]
     Route: 048
     Dates: start: 20040826
  11. TRAMADOL [Concomitant]
     Route: 048
     Dates: start: 20050524
  12. KLONOPIN [Concomitant]
     Route: 048
     Dates: start: 20061227

REACTIONS (3)
  - DIABETES MELLITUS [None]
  - DIABETES MELLITUS INADEQUATE CONTROL [None]
  - GLYCOSURIA [None]
